FAERS Safety Report 6280764-5 (Version None)
Quarter: 2009Q3

REPORT INFORMATION
  Report Type: 
  Country: None (occurrence: None)
  Receive Date: 20090724
  Receipt Date: 20090116
  Transmission Date: 20100115
  Serious: No
  Sender: FDA-Public Use
  Company Number: A0764614A

PATIENT
  Sex: Female
  Weight: 131.4 kg

DRUGS (1)
  1. AVANDIA [Suspect]
     Dosage: 8MG TWICE PER DAY
     Route: 048
     Dates: start: 20000101, end: 20061004

REACTIONS (2)
  - OBESITY [None]
  - WEIGHT INCREASED [None]
